FAERS Safety Report 5673918-X (Version None)
Quarter: 2008Q2

REPORT INFORMATION
  Report Type: 
  Country: None (occurrence: None)
  Receive Date: 20080228
  Receipt Date: 20071211
  Transmission Date: 20081010
  Serious: Yes (Hospitalization)
  Sender: FDA-Public Use
  Company Number: US200712002218

PATIENT
  Age: 36 Year
  Sex: Female

DRUGS (8)
  1. CYMBALTA [Suspect]
     Indication: DEPRESSION
     Dosage: 60 MG
     Dates: start: 20070901, end: 20070101
  2. SYMBYAX [Concomitant]
     Indication: MANIA
     Dosage: 1 D/F
     Dates: start: 20071101, end: 20071101
  3. IBUPROFEN (IBUPROFEN) UNK [Concomitant]
  4. HYDROCODONE (HYDROCODONE) UNK [Concomitant]
  5. ABILIFY [Concomitant]
  6. SKELAXIN [Concomitant]
  7. CELEXA [Concomitant]
  8. MARIJUANA (CANNABIS SATIVA) [Concomitant]

REACTIONS (5)
  - AGITATION [None]
  - HALLUCINATION, AUDITORY [None]
  - INSOMNIA [None]
  - MANIA [None]
  - SOMNOLENCE [None]
